FAERS Safety Report 6974193-6 (Version None)
Quarter: 2010Q3

REPORT INFORMATION
  Report Type: 
  Country: None (occurrence: None)
  Receive Date: 20100909
  Receipt Date: 20100831
  Transmission Date: 20110219
  Serious: No
  Sender: FDA-Public Use
  Company Number: US-B.I. PHARMACEUTICALS,INC./RIDGEFIELD-2010-BP-09926BP

PATIENT
  Age: 68 Year
  Sex: Female

DRUGS (13)
  1. SPIRIVA [Suspect]
     Indication: CHRONIC OBSTRUCTIVE PULMONARY DISEASE
     Dosage: 18 MCG
     Route: 055
     Dates: start: 20060101, end: 20100801
  2. OXYGEN [Concomitant]
     Indication: CHRONIC OBSTRUCTIVE PULMONARY DISEASE
  3. NEURONTIN [Concomitant]
     Indication: NERVE INJURY
  4. HYDROCODONE [Concomitant]
     Indication: PAIN
  5. ALPRAZOLAM [Concomitant]
     Indication: ANXIETY
  6. ROBINUL [Concomitant]
     Indication: NERVE INJURY
  7. ASCORBIC ACID [Concomitant]
     Indication: SUPPLEMENTATION THERAPY
  8. VITAMIN B-12 [Concomitant]
     Indication: SUPPLEMENTATION THERAPY
  9. FUROSEMIDE [Concomitant]
     Indication: CHRONIC OBSTRUCTIVE PULMONARY DISEASE
  10. PANTOPRAZOLE [Concomitant]
     Indication: ULCER
  11. VITAMIN D [Concomitant]
     Indication: SUPPLEMENTATION THERAPY
  12. AMLODIPINE [Concomitant]
     Indication: HYPERTENSION
  13. ALBUTEROL [Concomitant]
     Indication: CHRONIC OBSTRUCTIVE PULMONARY DISEASE

REACTIONS (2)
  - INCREASED UPPER AIRWAY SECRETION [None]
  - LUNG DISORDER [None]
